FAERS Safety Report 13682259 (Version 3)
Quarter: 2017Q3

REPORT INFORMATION
  Report Type: Spontaneous
  Country: JP (occurrence: JP)
  Receive Date: 20170623
  Receipt Date: 20170724
  Transmission Date: 20171127
  Serious: Yes (Hospitalization, Other)
  Sender: FDA-Public Use
  Company Number: JP-PFIZER INC-2017225029

PATIENT
  Age: 58 Year
  Sex: Male
  Weight: 54 kg

DRUGS (5)
  1. CHAMPIX 0.5MG [Suspect]
     Active Substance: VARENICLINE TARTRATE
     Indication: SMOKING CESSATION THERAPY
     Dosage: 0.5 MG, 1X/DAY
     Route: 048
     Dates: start: 20170515, end: 20170518
  2. TRAMCET [Concomitant]
     Active Substance: ACETAMINOPHEN\TRAMADOL
     Indication: INTERVERTEBRAL DISC PROTRUSION
     Dosage: 1 DF, 3X/DAY
     Route: 048
     Dates: start: 201704
  3. LYRICA [Concomitant]
     Active Substance: PREGABALIN
     Indication: INTERVERTEBRAL DISC PROTRUSION
     Dosage: 75 MG, 2X/DAY
     Route: 048
     Dates: start: 201704
  4. NOVAMIN (PROCHLORPERAZINE) [Concomitant]
     Active Substance: PROCHLORPERAZINE
     Dosage: 5 MG, 3X/DAY
     Route: 048
     Dates: start: 201704
  5. LOXOPROFEN [Concomitant]
     Active Substance: LOXOPROFEN
     Indication: INTERVERTEBRAL DISC PROTRUSION
     Dosage: 60 MG, 3X/DAY
     Route: 048
     Dates: start: 201704

REACTIONS (4)
  - Suicidal ideation [Recovered/Resolved]
  - Depression [Recovered/Resolved]
  - Mood disorder due to a general medical condition [Recovered/Resolved]
  - Anxiety [Recovered/Resolved]

NARRATIVE: CASE EVENT DATE: 20170517
